FAERS Safety Report 5241143-2 (Version None)
Quarter: 2007Q1

REPORT INFORMATION
  Report Type: 
  Country: None (occurrence: None)
  Receive Date: 20070220
  Receipt Date: 20070207
  Transmission Date: 20070707
  Serious: Yes (Hospitalization)
  Sender: FDA-Public Use
  Company Number: DE-JNJFOC-20070202220

PATIENT
  Sex: Male
  Weight: 60 kg

DRUGS (5)
  1. REMICADE [Suspect]
  2. REMICADE [Suspect]
  3. REMICADE [Suspect]
     Indication: CROHN'S DISEASE
  4. DECORTIN [Concomitant]
     Indication: CROHN'S DISEASE
     Route: 065
  5. NEXIUM [Concomitant]
     Route: 065

REACTIONS (1)
  - RECTAL CANCER [None]
